FAERS Safety Report 10160490 (Version 4)
Quarter: 2015Q1

REPORT INFORMATION
  Report Type: Spontaneous
  Country: US (occurrence: US)
  Receive Date: 20140508
  Receipt Date: 20150128
  Transmission Date: 20150720
  Serious: Yes (Hospitalization, Other)
  Sender: FDA-Public Use
  Company Number: US-BAYER-2014-065661

PATIENT
  Age: 41 Year
  Sex: Female
  Weight: 70.3 kg

DRUGS (3)
  1. MIRENA [Suspect]
     Active Substance: LEVONORGESTREL
     Indication: MENORRHAGIA
  2. VIVELLE-DOT [Concomitant]
     Active Substance: ESTRADIOL
     Indication: HORMONE REPLACEMENT THERAPY
     Dosage: UNK
     Dates: start: 201205
  3. MIRENA [Suspect]
     Active Substance: LEVONORGESTREL
     Indication: CONTRACEPTION
     Dosage: 20 MCG/24HR, CONT
     Route: 015
     Dates: start: 20070223, end: 20120506

REACTIONS (11)
  - Uterine perforation [None]
  - Device misuse [None]
  - Arthralgia [Not Recovered/Not Resolved]
  - Emotional distress [None]
  - Abdominal pain [None]
  - Depression [None]
  - Injury [None]
  - Back pain [None]
  - Scar [None]
  - Embedded device [None]
  - Flank pain [None]

NARRATIVE: CASE EVENT DATE: 2012
